FAERS Safety Report 7074984-X (Version None)
Quarter: 2010Q4

REPORT INFORMATION
  Report Type: 
  Country: None (occurrence: None)
  Receive Date: 20101029
  Receipt Date: 20100217
  Transmission Date: 20110411
  Serious: No
  Sender: FDA-Public Use
  Company Number: US-WYE-H13110010

PATIENT
  Age: 52 Year
  Sex: Male
  Weight: 90.8 kg

DRUGS (2)
  1. ADVIL PM [Suspect]
     Indication: ANALGESIC THERAPY
     Dosage: 2 CAPLETS AT BED TIME
     Route: 048
     Dates: start: 20100114, end: 20100115
  2. ADVIL PM [Suspect]
     Indication: INSOMNIA

REACTIONS (3)
  - DRUG INEFFECTIVE [None]
  - FEELING JITTERY [None]
  - RESTLESS LEGS SYNDROME [None]
